FAERS Safety Report 11220370 (Version 1)
Quarter: 2015Q2

REPORT INFORMATION
  Report Type: Spontaneous
  Country: US (occurrence: None)
  Receive Date: 20150625
  Receipt Date: 20150625
  Transmission Date: 20150821
  Serious: No
  Sender: FDA-Public Use
  Company Number: None

PATIENT
  Age: 59 Year
  Sex: Male

DRUGS (11)
  1. HCTZ [Concomitant]
     Active Substance: HYDROCHLOROTHIAZIDE
  2. HARVONI [Suspect]
     Active Substance: LEDIPASVIR\SOFOSBUVIR
     Indication: HEPATITIS
     Route: 048
     Dates: start: 20150429
  3. AMOXICILLIN. [Concomitant]
     Active Substance: AMOXICILLIN
  4. LORAZEPAM. [Concomitant]
     Active Substance: LORAZEPAM
  5. ZOLPIDEM [Concomitant]
     Active Substance: ZOLPIDEM\ZOLPIDEM TARTRATE
  6. BUPROPION [Concomitant]
     Active Substance: BUPROPION
  7. GABAPENTIN. [Concomitant]
     Active Substance: GABAPENTIN
  8. PREZISTA [Concomitant]
     Active Substance: DARUNAVIR ETHANOLATE
  9. EPZICOM [Concomitant]
     Active Substance: ABACAVIR SULFATE\LAMIVUDINE
  10. PROVENTIL [Concomitant]
     Active Substance: ALBUTEROL
  11. NORVIR [Concomitant]
     Active Substance: RITONAVIR

REACTIONS (3)
  - Nausea [None]
  - Fatigue [None]
  - Headache [None]
